FAERS Safety Report 12887915 (Version 1)
Quarter: 2016Q4

REPORT INFORMATION
  Report Type: Spontaneous
  Country: FR (occurrence: FR)
  Receive Date: 20161027
  Receipt Date: 20161027
  Transmission Date: 20170207
  Serious: Yes (Hospitalization)
  Sender: FDA-Public Use
  Company Number: FR-ROCHE-1844969

PATIENT
  Age: 75 Year
  Sex: Female
  Weight: 65 kg

DRUGS (8)
  1. SUFENTANYL [Concomitant]
     Active Substance: SUFENTANIL
  2. TEMAZEPAM. [Concomitant]
     Active Substance: TEMAZEPAM
  3. VALIUM [Suspect]
     Active Substance: DIAZEPAM
     Indication: PRODUCT USED FOR UNKNOWN INDICATION
     Route: 048
     Dates: start: 20160703, end: 20160703
  4. AMITRIPTYLINE [Suspect]
     Active Substance: AMITRIPTYLINE
     Indication: PRODUCT USED FOR UNKNOWN INDICATION
     Route: 048
     Dates: start: 20160703, end: 20160703
  5. OXAZEPAM. [Concomitant]
     Active Substance: OXAZEPAM
  6. PROPOFOL. [Concomitant]
     Active Substance: PROPOFOL
  7. NORDIAZEPAM [Concomitant]
     Active Substance: NORDAZEPAM
  8. MIANSERINE [Concomitant]
     Active Substance: MIANSERIN HYDROCHLORIDE

REACTIONS (3)
  - Coma [Recovered/Resolved]
  - Toxicity to various agents [Recovered/Resolved]
  - Diabetes mellitus inadequate control [Recovered/Resolved]

NARRATIVE: CASE EVENT DATE: 20160703
